FAERS Safety Report 19137982 (Version 1)
Quarter: 2021Q2

REPORT INFORMATION
  Report Type: Spontaneous
  Country: GB (occurrence: GB)
  Receive Date: 20210414
  Receipt Date: 20210414
  Transmission Date: 20210717
  Serious: No
  Sender: FDA-Public Use
  Company Number: GB-LUPIN PHARMACEUTICALS INC.-2021-04698

PATIENT
  Age: 48 Year
  Sex: Female

DRUGS (3)
  1. AETHOXYSKLEROL [POLIDOCANOL] [Concomitant]
     Indication: TELANGIECTASIA
     Dosage: UNK, WITH 0.3% AETHOXYSKLEROL, MADE UP BY DILUTING 2% LAUROMACROGOL
     Route: 065
  2. LAUROMACROGOL [Concomitant]
     Indication: TELANGIECTASIA
     Dosage: UNK, WITH 0.3% AETHOXYSKLEROL, MADE UP BY DILUTING 2% LAUROMACROGOL
     Route: 065
  3. MORPHINE [Suspect]
     Active Substance: MORPHINE
     Indication: PRODUCT USED FOR UNKNOWN INDICATION
     Dosage: UNK
     Route: 065

REACTIONS (1)
  - Vomiting [Unknown]
